FAERS Safety Report 26175232 (Version 2)
Quarter: 2025Q4

REPORT INFORMATION
  Report Type: Spontaneous
  Country: US (occurrence: US)
  Receive Date: 20251218
  Receipt Date: 20251218
  Transmission Date: 20260117
  Serious: Yes (Other)
  Sender: ROCHE
  Company Number: US-ROCHE-10000455831

PATIENT
  Age: 80 Year
  Sex: Female
  Weight: 74.84 kg

DRUGS (16)
  1. AVASTIN [Suspect]
     Active Substance: BEVACIZUMAB
     Indication: Neovascular age-related macular degeneration
     Dosage: LEFT EYE
     Route: 031
  2. VABYSMO [Suspect]
     Active Substance: FARICIMAB-SVOA
     Indication: Neovascular age-related macular degeneration
     Route: 031
  3. VABYSMO [Suspect]
     Active Substance: FARICIMAB-SVOA
  4. VABYSMO [Suspect]
     Active Substance: FARICIMAB-SVOA
  5. VABYSMO [Suspect]
     Active Substance: FARICIMAB-SVOA
  6. METFORMIN [Suspect]
     Active Substance: METFORMIN HYDROCHLORIDE
     Indication: Type 2 diabetes mellitus
     Dosage: ONE 500 MG TABLET IN THE MORNING AND 2 IN THE AFTERNOON
     Dates: start: 2010, end: 20250908
  7. METFORMIN [Suspect]
     Active Substance: METFORMIN HYDROCHLORIDE
  8. METFORMIN [Suspect]
     Active Substance: METFORMIN HYDROCHLORIDE
     Dosage: ONE 500 MG TABLET IN THE MORNING AND 2 IN THE AFTERNOON
  9. DUPIXENT [Suspect]
     Active Substance: DUPILUMAB
     Indication: Nasal polyps
     Dosage: ^SHOTS^
     Dates: start: 20241111, end: 202505
  10. EYLEA [Suspect]
     Active Substance: AFLIBERCEPT
     Indication: Neovascular age-related macular degeneration
     Route: 031
     Dates: start: 20200217
  11. EYLEA [Suspect]
     Active Substance: AFLIBERCEPT
     Route: 031
  12. BETADINE [Suspect]
     Active Substance: POVIDONE-IODINE
     Indication: Product used for unknown indication
     Route: 047
  13. DILTIAZEM [Concomitant]
     Active Substance: DILTIAZEM
  14. LISINOPRIL [Concomitant]
     Active Substance: LISINOPRIL
     Dates: start: 2007
  15. ROSUVASTATIN [Concomitant]
     Active Substance: ROSUVASTATIN
     Indication: Blood cholesterol increased
     Dates: start: 2007
  16. ELIQUIS [Concomitant]
     Active Substance: APIXABAN
     Indication: Atrial fibrillation
     Dates: start: 20230801

REACTIONS (8)
  - Off label use [Unknown]
  - Neovascular age-related macular degeneration [Unknown]
  - Eye pain [Recovered/Resolved]
  - Crying [Recovered/Resolved]
  - Lymphadenopathy [Unknown]
  - Brain neoplasm benign [Unknown]
  - White blood cell count abnormal [Unknown]
  - Diarrhoea [Recovered/Resolved]

NARRATIVE: CASE EVENT DATE: 20251202
